FAERS Safety Report 23125380 (Version 3)
Quarter: 2023Q4

REPORT INFORMATION
  Report Type: Spontaneous
  Country: PS (occurrence: PS)
  Receive Date: 20231030
  Receipt Date: 20231222
  Transmission Date: 20240109
  Serious: Yes (Life-Threatening, Hospitalization)
  Sender: FDA-Public Use
  Company Number: PS-JNJFOC-20231062846

PATIENT
  Age: 47 Year
  Sex: Female
  Weight: 120 kg

DRUGS (3)
  1. OPSUMIT [Suspect]
     Active Substance: MACITENTAN
     Indication: Pulmonary arterial hypertension
     Route: 048
     Dates: start: 20231005, end: 202310
  2. OPSUMIT [Suspect]
     Active Substance: MACITENTAN
     Indication: Pulmonary arterial hypertension
  3. DILTIAZEM [Concomitant]
     Active Substance: DILTIAZEM
     Indication: Pulmonary arterial hypertension
     Route: 048
     Dates: start: 20150101

REACTIONS (2)
  - Pulmonary arterial hypertension [Recovering/Resolving]
  - Left ventricular failure [Recovering/Resolving]

NARRATIVE: CASE EVENT DATE: 20231001
